FAERS Safety Report 10599188 (Version 1)
Quarter: 2014Q4

REPORT INFORMATION
  Report Type: Spontaneous
  Country: FR (occurrence: FR)
  Receive Date: 20141121
  Receipt Date: 20141121
  Transmission Date: 20150529
  Serious: Yes (Hospitalization, Other)
  Sender: FDA-Public Use
  Company Number: PHHY2014FR149053

PATIENT
  Age: 24 Year
  Sex: Male

DRUGS (3)
  1. RITALINE [Suspect]
     Active Substance: METHYLPHENIDATE HYDROCHLORIDE
     Indication: OFF LABEL USE
  2. MORPHINE SULFATE. [Suspect]
     Active Substance: MORPHINE SULFATE
     Indication: PRODUCT USED FOR UNKNOWN INDICATION
     Route: 031
  3. RITALINE [Suspect]
     Active Substance: METHYLPHENIDATE HYDROCHLORIDE
     Indication: DRUG DIVERSION
     Route: 065

REACTIONS (5)
  - Staphylococcal bacteraemia [Unknown]
  - Psoas abscess [Unknown]
  - Muscle abscess [Unknown]
  - Drug abuse [Unknown]
  - Drug diversion [Unknown]
